FAERS Safety Report 20125215 (Version 1)
Quarter: 2021Q4

REPORT INFORMATION
  Report Type: Spontaneous
  Country: FR (occurrence: FR)
  Receive Date: 20211129
  Receipt Date: 20211129
  Transmission Date: 20220304
  Serious: Yes (Death)
  Sender: FDA-Public Use
  Company Number: None

PATIENT
  Age: 85 Year
  Sex: Male

DRUGS (6)
  1. FLUOXETINE [Interacting]
     Active Substance: FLUOXETINE HYDROCHLORIDE
     Indication: Mental disorder
     Dosage: 20 MILLIGRAM, QD
     Route: 048
     Dates: end: 20210806
  2. PLAVIX [Interacting]
     Active Substance: CLOPIDOGREL BISULFATE
     Indication: Thromboangiitis obliterans
     Dosage: 1 DOSAGE FORM, QD
     Route: 048
     Dates: end: 20210806
  3. PANTOPRAZOLE [Concomitant]
     Active Substance: PANTOPRAZOLE
     Dosage: 20 MILLIGRAM, QD
     Route: 048
     Dates: end: 20210806
  4. PRAVASTATINE                       /00880402/ [Concomitant]
     Dosage: 20 MILLIGRAM, QD
     Route: 048
     Dates: end: 20210806
  5. METFORMINE                         /00082701/ [Concomitant]
     Dosage: 1 GRAM, QD
     Route: 048
     Dates: end: 20210806
  6. AVODART [Concomitant]
     Active Substance: DUTASTERIDE
     Dosage: 1 DOSAGE FORM, QD
     Route: 048
     Dates: end: 20210806

REACTIONS (2)
  - Subdural haematoma [Fatal]
  - Drug interaction [Fatal]

NARRATIVE: CASE EVENT DATE: 20210806
